FAERS Safety Report 7808722-7 (Version None)
Quarter: 2011Q4

REPORT INFORMATION
  Report Type: 
  Country: None (occurrence: None)
  Receive Date: 20111012
  Receipt Date: 20111004
  Transmission Date: 20120403
  Serious: Yes (Hospitalization)
  Sender: FDA-Public Use
  Company Number: FR-UCBSA-026601

PATIENT
  Age: 63 Year
  Sex: Female

DRUGS (2)
  1. URBANYL [Concomitant]
     Route: 048
  2. VIMPAT [Suspect]
     Indication: EPILEPSY
     Route: 048
     Dates: start: 20091101, end: 20101203

REACTIONS (3)
  - FALL [None]
  - PETIT MAL EPILEPSY [None]
  - SUBDURAL HAEMATOMA [None]
